FAERS Safety Report 8080182-3 (Version None)
Quarter: 2012Q1

REPORT INFORMATION
  Report Type: 
  Country: None (occurrence: None)
  Receive Date: 20120130
  Receipt Date: 20120125
  Transmission Date: 20120608
  Serious: Yes (Death)
  Sender: FDA-Public Use
  Company Number: US-CELGENEUS-163-21660-12010430

PATIENT
  Sex: Male

DRUGS (3)
  1. ABRAXANE [Suspect]
     Indication: HEAD AND NECK CANCER
     Route: 041
     Dates: start: 20110817, end: 20110921
  2. LIPITOR [Concomitant]
     Route: 065
  3. HYDROCODONE BITARTRATE [Concomitant]
     Route: 065

REACTIONS (1)
  - HEAD AND NECK CANCER [None]
